FAERS Safety Report 8173943 (Version 2)
Quarter: 2014Q2

REPORT INFORMATION
  Report Type: Spontaneous
  Country: US (occurrence: US)
  Receive Date: 20111010
  Receipt Date: 20140501
  Transmission Date: 20141212
  Serious: Yes (Hospitalization, Other)
  Sender: FDA-Public Use
  Company Number: US-BAYER-2011-091714

PATIENT
  Age: 35 Year
  Sex: Female
  Weight: 108.84 kg

DRUGS (9)
  1. YAZ [Suspect]
     Dosage: UNK
     Dates: start: 200401
  2. YASMIN [Suspect]
     Dosage: UNK
     Dates: start: 200401
  3. DITROPAN [Concomitant]
     Indication: POLLAKIURIA
     Dosage: 10 MG, UNK
     Route: 048
     Dates: start: 20030307, end: 20091210
  4. SYNTHROID [Concomitant]
     Dosage: 25 MCG, UNK
     Route: 048
     Dates: start: 20070531, end: 20101213
  5. GEODON [Concomitant]
     Dosage: 60 MG, UNK
     Route: 048
     Dates: start: 20080529, end: 20100118
  6. PERCOCET [Concomitant]
  7. REGLAN [Concomitant]
  8. CIPRO [Concomitant]
  9. PEPTO BISMOL [Concomitant]

REACTIONS (8)
  - Cholecystectomy [None]
  - Cholecystitis acute [None]
  - Injury [None]
  - Pain [None]
  - General physical health deterioration [None]
  - Anxiety [None]
  - Anhedonia [None]
  - Emotional distress [None]
